FAERS Safety Report 8921841 (Version 2)
Quarter: 2013Q1

REPORT INFORMATION
  Report Type: Spontaneous
  Country: FR (occurrence: FR)
  Receive Date: 20121121
  Receipt Date: 20130102
  Transmission Date: 20140127
  Serious: Yes (Hospitalization)
  Sender: FDA-Public Use
  Company Number: FR-B.I. PHARMACEUTICALS,INC./RIDGEFIELD-2012-FF-01609FF

PATIENT
  Age: 85 Year
  Sex: Female
  Weight: 80 kg

DRUGS (12)
  1. PRADAXA [Suspect]
     Indication: ATRIAL FIBRILLATION
     Dosage: 220 MG
     Route: 048
     Dates: start: 201210, end: 20121111
  2. BISOPROLOL [Concomitant]
     Dosage: 10 MG
  3. GLIMEPIRIDE [Concomitant]
     Dosage: 2 MG
  4. GLUCOPHAGE [Concomitant]
     Dosage: 2550 MG
  5. TAREG [Concomitant]
     Dosage: 80 MG
  6. NEOMERCAZOL [Concomitant]
     Dosage: 10 MG
  7. TAHOR [Concomitant]
  8. ESIDREX [Concomitant]
  9. LASILIX [Concomitant]
  10. VALSARTAN [Concomitant]
  11. VITAMINE B12 [Concomitant]
  12. LANTUS [Concomitant]

REACTIONS (2)
  - Renal failure [Not Recovered/Not Resolved]
  - Gingival bleeding [Unknown]
